FAERS Safety Report 4470771-7 (Version None)
Quarter: 2004Q4

REPORT INFORMATION
  Report Type: 
  Country: None (occurrence: None)
  Receive Date: 20041006
  Receipt Date: 20041006
  Transmission Date: 20050328
  Serious: No
  Sender: FDA-Public Use
  Company Number: None

PATIENT
  Age: 39 Year
  Sex: Male
  Weight: 91.173 kg

DRUGS (2)
  1. CIPROFLOXACIN [Suspect]
     Indication: DIARRHOEA
     Dosage: 500 MG BID ORAL
     Route: 048
     Dates: start: 20040927, end: 20040927
  2. KETOCONAZOLE [Concomitant]

REACTIONS (2)
  - PAIN IN EXTREMITY [None]
  - PARAESTHESIA [None]
